FAERS Safety Report 5343767-0 (Version None)
Quarter: 2007Q2

REPORT INFORMATION
  Report Type: 
  Country: None (occurrence: None)
  Receive Date: 20070604
  Receipt Date: 20070523
  Transmission Date: 20071010
  Serious: Yes (Hospitalization)
  Sender: FDA-Public Use
  Company Number: SK-AMGEN-US223779

PATIENT
  Sex: Male

DRUGS (2)
  1. ENBREL [Suspect]
     Indication: JUVENILE ARTHRITIS
     Dosage: 0.7 ML OF A 25 MG VIAL
     Route: 058
     Dates: start: 20060426, end: 20070523
  2. METHOTREXATE SODIUM [Concomitant]
     Indication: JUVENILE ARTHRITIS
     Dosage: 10 MG, FREQUENCY UNKNOWN

REACTIONS (1)
  - CROHN'S DISEASE [None]
